FAERS Safety Report 5870894-1 (Version None)
Quarter: 2008Q3

REPORT INFORMATION
  Report Type: 
  Country: None (occurrence: None)
  Receive Date: 20080904
  Receipt Date: 20080829
  Transmission Date: 20090109
  Serious: Yes (Life-Threatening)
  Sender: FDA-Public Use
  Company Number: GR-BAXTER-2008BH009300

PATIENT
  Age: 32 Year
  Sex: Male

DRUGS (3)
  1. HEPARIN SODIUM 5,000 UNITS IN DEXTROSE 5% [Suspect]
     Indication: PROPHYLAXIS
     Dosage: DOSE UNIT:UNITS PER KILOGRAM
     Route: 040
  2. HEPARIN SODIUM 5,000 UNITS IN DEXTROSE 5% [Suspect]
     Dosage: DOSE UNIT:UNITS PER KILOGRAM
     Route: 042
  3. ACTILYSE ^BOEHRINGER INGELHEIM^ [Concomitant]
     Indication: DRUG USE FOR UNKNOWN INDICATION
     Route: 042

REACTIONS (1)
  - HEPARIN-INDUCED THROMBOCYTOPENIA [None]
